FAERS Safety Report 7830324-7 (Version None)
Quarter: 2011Q4

REPORT INFORMATION
  Report Type: 
  Country: None (occurrence: None)
  Receive Date: 20111021
  Receipt Date: 20111012
  Transmission Date: 20120403
  Serious: Yes (Hospitalization)
  Sender: FDA-Public Use
  Company Number: JP-BRISTOL-MYERS SQUIBB COMPANY-15973118

PATIENT
  Age: 1 Day
  Sex: Male
  Weight: 4 kg

DRUGS (1)
  1. ABILIFY [Suspect]
     Dosage: 15MG:UPTO 30JUL10.9-31JUL-17SEP10.6MG-18SEP-15OCT10.3MG-16OCT-13NOV10.6M-25DEC-13APR.ALSO14APR11.
     Route: 064
     Dates: start: 20100731

REACTIONS (2)
  - HYPOGLYCAEMIA NEONATAL [None]
  - C-REACTIVE PROTEIN INCREASED [None]
